FAERS Safety Report 9980817 (Version 3)
Quarter: 2014Q3

REPORT INFORMATION
  Report Type: Spontaneous
  Country: JP (occurrence: None)
  Receive Date: 20140305
  Receipt Date: 20140717
  Transmission Date: 20150326
  Serious: Yes (Other)
  Sender: FDA-Public Use
  Company Number: ABR_01518_2014

PATIENT
  Age: 61 Year
  Sex: Female

DRUGS (2)
  1. GLIADEL [Suspect]
     Active Substance: CARMUSTINE
     Indication: MALIGNANT GLIOMA
     Dosage: [ONCE] INTRACERBRAL
     Dates: start: 20140129, end: 201403
  2. TEMODAL [Concomitant]
     Active Substance: TEMOZOLOMIDE

REACTIONS (3)
  - Paralysis [None]
  - Brain oedema [None]
  - Headache [None]

NARRATIVE: CASE EVENT DATE: 20140130
